FAERS Safety Report 8206804-1 (Version None)
Quarter: 2012Q1

REPORT INFORMATION
  Report Type: 
  Country: None (occurrence: None)
  Receive Date: 20120308
  Receipt Date: 20120308
  Transmission Date: 20120608
  Serious: Yes (Other)
  Sender: FDA-Public Use
  Company Number: 2012031441

PATIENT
  Age: 3 Year
  Sex: Male
  Weight: 15.8759 kg

DRUGS (2)
  1. HIZENTRA [Suspect]
     Indication: HYPER IGM SYNDROME
     Dosage: 4 G 1X/WEEK, 4 GM (20 ML) ON 4 SITES OVER 1-2 HOURS SUBCUTANEOUS
     Route: 058
  2. SINGULAIR [Concomitant]

REACTIONS (1)
  - OPEN WOUND [None]
